FAERS Safety Report 9534296 (Version 1)
Quarter: 2013Q3

REPORT INFORMATION
  Report Type: Spontaneous
  Country: JP (occurrence: JP)
  Receive Date: 20130918
  Receipt Date: 20130918
  Transmission Date: 20140515
  Serious: Yes (Other)
  Sender: FDA-Public Use
  Company Number: JP-GLAXOSMITHKLINE-B0921294A

PATIENT
  Age: 28 Year
  Sex: Female

DRUGS (1)
  1. VALTREX [Suspect]
     Indication: HERPES SIMPLEX
     Dosage: 500MG TWICE PER DAY
     Route: 048
     Dates: start: 20130828, end: 20130901

REACTIONS (3)
  - Altered state of consciousness [Recovered/Resolved]
  - Depressed mood [Unknown]
  - Logorrhoea [Unknown]
